FAERS Safety Report 10149584 (Version 1)
Quarter: 2014Q2

REPORT INFORMATION
  Report Type: Spontaneous
  Country: US (occurrence: US)
  Receive Date: 20140502
  Receipt Date: 20140502
  Transmission Date: 20141212
  Serious: No
  Sender: FDA-Public Use
  Company Number: US-PFIZER INC-2014119110

PATIENT
  Age: 67 Year
  Sex: Female

DRUGS (8)
  1. PREMARIN [Suspect]
     Dosage: 1 DF, 1X/DAY [0.625 1 DAILY]
  2. PROTONIX [Suspect]
     Dosage: 40 MG, 2X/DAY
  3. TETRACYCLINE HCL [Suspect]
     Dosage: UNK
  4. ASPIRIN [Suspect]
     Dosage: UNK
  5. PROVENTIL INHALER [Suspect]
     Dosage: UNK
  6. NASONEX [Suspect]
     Dosage: UNK
  7. CLARINEX [Suspect]
     Dosage: UNK
  8. VALIUM [Suspect]
     Dosage: UNK

REACTIONS (1)
  - Drug hypersensitivity [Unknown]
